FAERS Safety Report 5752595-3 (Version None)
Quarter: 2008Q2

REPORT INFORMATION
  Report Type: 
  Country: None (occurrence: None)
  Receive Date: 20080527
  Receipt Date: 20080527
  Transmission Date: 20081010
  Serious: No
  Sender: FDA-Public Use
  Company Number: None

PATIENT
  Age: 73 Year
  Sex: Male
  Weight: 113 kg

DRUGS (1)
  1. ALENDRONATE SODIUM [Suspect]
     Indication: OSTEOPOROSIS
     Dosage: 70 MG QWEEK PO
     Route: 048
     Dates: start: 20061026, end: 20080326

REACTIONS (3)
  - GINGIVAL PAIN [None]
  - OROPHARYNGEAL PLAQUE [None]
  - OSTEONECROSIS [None]
